FAERS Safety Report 21774134 (Version 1)
Quarter: 2022Q4

REPORT INFORMATION
  Report Type: Spontaneous
  Country: US (occurrence: US)
  Receive Date: 20221223
  Receipt Date: 20221223
  Transmission Date: 20230112
  Serious: Yes (Other)
  Sender: FDA-Public Use
  Company Number: US-INCYTE CORPORATION-2022IN012449

PATIENT

DRUGS (1)
  1. JAKAFI [Suspect]
     Active Substance: RUXOLITINIB
     Indication: Primary myelofibrosis
     Route: 065

REACTIONS (1)
  - Diffuse large B-cell lymphoma [Unknown]
